FAERS Safety Report 8385960-9 (Version None)
Quarter: 2012Q2

REPORT INFORMATION
  Report Type: 
  Country: None (occurrence: None)
  Receive Date: 20120525
  Receipt Date: 20120516
  Transmission Date: 20120825
  Serious: Yes (Other)
  Sender: FDA-Public Use
  Company Number: CA-JNJFOC-20120514172

PATIENT
  Sex: Female
  Weight: 75 kg

DRUGS (3)
  1. ZOLOFT [Concomitant]
     Route: 065
  2. DESOGESTREL AND ETHINYL ESTRADIOL [Concomitant]
     Indication: ORAL CONTRACEPTION
     Route: 065
  3. REMICADE [Suspect]
     Indication: COLITIS ULCERATIVE
     Route: 042
     Dates: start: 20080514

REACTIONS (2)
  - DIARRHOEA [None]
  - VOMITING [None]
